FAERS Safety Report 4542286-9 (Version None)
Quarter: 2004Q4

REPORT INFORMATION
  Report Type: 
  Country: None (occurrence: None)
  Receive Date: 20041227
  Receipt Date: 20041214
  Transmission Date: 20050328
  Serious: No
  Sender: FDA-Public Use
  Company Number: 2004-BP-10392BP (2)

PATIENT
  Age: 79 Year
  Sex: Male

DRUGS (9)
  1. COMBIVENT [Suspect]
     Indication: CHRONIC OBSTRUCTIVE AIRWAYS DISEASE
     Dosage: 8 PUFF (SEE TEXT, 2 PUFFS 4X/DAY (18 MCG/103 MCG), IH
     Route: 055
  2. COMBIVENT [Suspect]
     Indication: EMPHYSEMA
     Dosage: 8 PUFF (SEE TEXT, 2 PUFFS 4X/DAY (18 MCG/103 MCG), IH
     Route: 055
  3. NEBULIZER [Concomitant]
  4. PREVACID [Concomitant]
  5. THEOPHYLLINE [Concomitant]
  6. PAXIL [Concomitant]
  7. PRAVACHOL [Concomitant]
  8. FLOMAX [Concomitant]
  9. XANAX [Concomitant]

REACTIONS (3)
  - DEVICE FAILURE [None]
  - DRUG INEFFECTIVE [None]
  - PHARMACEUTICAL PRODUCT COMPLAINT [None]
